FAERS Safety Report 24167423 (Version 1)
Quarter: 2024Q3

REPORT INFORMATION
  Report Type: Report from Study
  Country: DE (occurrence: DE)
  Receive Date: 20240802
  Receipt Date: 20240802
  Transmission Date: 20241016
  Serious: No
  Sender: ROCHE
  Company Number: DE-ML39632-2044188-0

PATIENT
  Age: 53 Year
  Sex: Female
  Weight: 73 kg

DRUGS (15)
  1. OCREVUS [Suspect]
     Active Substance: OCRELIZUMAB
     Indication: Relapsing multiple sclerosis
     Route: 042
     Dates: start: 20211117, end: 20211201
  2. OCREVUS [Suspect]
     Active Substance: OCRELIZUMAB
     Route: 042
     Dates: start: 20220601
  3. spironolactron [Concomitant]
     Indication: Hypertension
     Route: 048
     Dates: start: 202303
  4. MOXONIDINE [Concomitant]
     Active Substance: MOXONIDINE
     Indication: Hypertension
     Route: 048
  5. TELMISARTAN [Concomitant]
     Active Substance: TELMISARTAN
     Indication: Hypertension
     Route: 048
  6. BISOPROLOL [Concomitant]
     Active Substance: BISOPROLOL\BISOPROLOL FUMARATE
     Indication: Hypertension
     Route: 048
     Dates: start: 202303
  7. Maren [Concomitant]
     Indication: Contraception
     Route: 048
     Dates: start: 2009
  8. Mirtrazapin [Concomitant]
     Dosage: DEFINITION OF THE INTERVAL: AS REQUIRED
     Route: 048
     Dates: start: 202212
  9. NATALIZUMAB [Concomitant]
     Active Substance: NATALIZUMAB
     Dates: start: 200712, end: 200907
  10. GLATIRAMER ACETATE [Concomitant]
     Active Substance: GLATIRAMER ACETATE
     Dates: start: 200908, end: 201009
  11. FINGOLIMOD [Concomitant]
     Active Substance: FINGOLIMOD
     Dates: start: 201010, end: 201805
  12. FINGOLIMOD [Concomitant]
     Active Substance: FINGOLIMOD
     Dates: start: 201903, end: 201910
  13. HUMAN IMMUNOGLOBULIN G [Concomitant]
     Active Substance: HUMAN IMMUNOGLOBULIN G
     Dates: start: 202011, end: 202109
  14. Dimethylfumarat [Concomitant]
     Dates: start: 201808, end: 201812
  15. Interferon beta 1a s.c. 44 ug [Concomitant]
     Dates: start: 200608, end: 200712

REACTIONS (2)
  - Fungal infection [Recovered/Resolved]
  - Cystitis noninfective [Recovered/Resolved]

NARRATIVE: CASE EVENT DATE: 20240401
